FAERS Safety Report 15734583 (Version 2)
Quarter: 2019Q1

REPORT INFORMATION
  Report Type: Spontaneous
  Country: IT (occurrence: IT)
  Receive Date: 20181218
  Receipt Date: 20190115
  Transmission Date: 20190417
  Serious: Yes (Hospitalization)
  Sender: FDA-Public Use
  Company Number: IT-GLAXOSMITHKLINE-IT2018227279

PATIENT
  Age: 4 Year
  Sex: Male

DRUGS (1)
  1. RANITIDINE. [Suspect]
     Active Substance: RANITIDINE
     Indication: GASTROOESOPHAGEAL REFLUX DISEASE
     Dosage: IN TOTAL
     Route: 048
     Dates: start: 20181106, end: 20181106

REACTIONS (1)
  - Hypersomnia [Recovered/Resolved]

NARRATIVE: CASE EVENT DATE: 20181106
